FAERS Safety Report 14921099 (Version 1)
Quarter: 2018Q2

REPORT INFORMATION
  Report Type: Spontaneous
  Country: US (occurrence: US)
  Receive Date: 20180521
  Receipt Date: 20180521
  Transmission Date: 20180711
  Serious: Yes (Other)
  Sender: FDA-Public Use
  Company Number: US-AMPHASTAR PHARMACEUTICALS, INC.-2048188

PATIENT
  Age: 80 Year
  Sex: Male
  Weight: 100 kg

DRUGS (12)
  1. ENOXAPARIN SODIUM. [Suspect]
     Active Substance: ENOXAPARIN SODIUM
     Indication: THROMBOSIS PROPHYLAXIS
     Route: 058
  2. CEPHALEXIN. [Concomitant]
     Active Substance: CEPHALEXIN
  3. ASPIRIN. [Concomitant]
     Active Substance: ASPIRIN
  4. DISKUS (INHALER) [Concomitant]
  5. MULTAQ [Concomitant]
     Active Substance: DRONEDARONE
  6. POTASSIUM SUPPLEMENT (PILL FORM) [Concomitant]
  7. COLACE [Concomitant]
     Active Substance: DOCUSATE SODIUM
  8. PERCOCET [Concomitant]
     Active Substance: ACETAMINOPHEN\OXYCODONE HYDROCHLORIDE
  9. FENTANYL TRANSDERMAL SYSTEM [Concomitant]
     Active Substance: FENTANYL
  10. NIACIN. [Concomitant]
     Active Substance: NIACIN
  11. PRADAXA [Concomitant]
     Active Substance: DABIGATRAN ETEXILATE MESYLATE
  12. NITROGLYCERIN. [Concomitant]
     Active Substance: NITROGLYCERIN

REACTIONS (3)
  - Removal of foreign body [Unknown]
  - Needle issue [None]
  - Foreign body [Unknown]

NARRATIVE: CASE EVENT DATE: 20180505
